FAERS Safety Report 8910497 (Version 1)
Quarter: 2012Q4

REPORT INFORMATION
  Report Type: 
  Country: GB (occurrence: GB)
  Receive Date: 20121114
  Receipt Date: 20121114
  Transmission Date: 20130627
  Serious: Yes (Other)
  Sender: FDA-Public Use
  Company Number: GB-BAUSCH-BL-2012-001683

PATIENT
  Sex: Female
  Weight: 2.22 kg

DRUGS (5)
  1. PREDNISOLONE [Suspect]
     Indication: FOETAL EXPOSURE DURING PREGNANCY
     Route: 064
     Dates: start: 2008
  2. MESALAZINE [Suspect]
     Indication: FOETAL EXPOSURE DURING PREGNANCY
     Route: 064
     Dates: start: 2008
  3. INFLIXIMAB [Suspect]
     Indication: FOETAL EXPOSURE DURING PREGNANCY
     Dosage: 450 mg 1/ 6 weeks
     Route: 064
     Dates: start: 2008
  4. INFLIXIMAB [Suspect]
     Indication: FOETAL EXPOSURE DURING PREGNANCY
     Dosage: 10 mg/kg
     Route: 064
  5. INFLIXIMAB [Suspect]
     Indication: FOETAL EXPOSURE DURING PREGNANCY
     Dosage: 7.5 mg/kg
     Route: 064
     Dates: start: 2008

REACTIONS (1)
  - Premature baby [Not Recovered/Not Resolved]
